FAERS Safety Report 8242585-3 (Version None)
Quarter: 2012Q1

REPORT INFORMATION
  Report Type: 
  Country: None (occurrence: None)
  Receive Date: 20120329
  Receipt Date: 20120323
  Transmission Date: 20120608
  Serious: Yes (Death, Hospitalization)
  Sender: FDA-Public Use
  Company Number: PHEH2012US004686

PATIENT
  Sex: Male

DRUGS (2)
  1. EXJADE [Suspect]
     Indication: SICKLE CELL ANAEMIA
  2. EXJADE [Suspect]
     Indication: HAEMOCHROMATOSIS
     Dosage: 750 MG, DAILY
     Route: 048
     Dates: start: 20060709, end: 20120130

REACTIONS (2)
  - DEATH [None]
  - SICKLE CELL ANAEMIA WITH CRISIS [None]
